FAERS Safety Report 14524577 (Version 2)
Quarter: 2018Q2

REPORT INFORMATION
  Report Type: Report from Study
  Country: BE (occurrence: BE)
  Receive Date: 20180213
  Receipt Date: 20180511
  Transmission Date: 20180711
  Serious: Yes (Other)
  Sender: FDA-Public Use
  Company Number: BE-ROCHE-2069923

PATIENT
  Age: 75 Year
  Sex: Female

DRUGS (7)
  1. TRASTUZUMAB. [Suspect]
     Active Substance: TRASTUZUMAB
     Indication: HER-2 POSITIVE BREAST CANCER
     Route: 042
  2. TRASTUZUMAB. [Suspect]
     Active Substance: TRASTUZUMAB
     Dosage: 6TH CYCLE
     Route: 042
  3. PERTUZUMAB. [Suspect]
     Active Substance: PERTUZUMAB
     Dosage: SECOND CYCLE ADMINISTERED 6 DAYS AFTER COMPLETION OF WHOLE BRAIN RADIATION THERAPY (WBRT)
     Route: 042
  4. TRASTUZUMAB. [Suspect]
     Active Substance: TRASTUZUMAB
     Dosage: SECOND CYCLE ADMINISTERED 6 DAYS AFTER COMPLETION OF WHOLE BRAIN RADIATION THERAPY (WBRT)
     Route: 042
  5. PERTUZUMAB. [Suspect]
     Active Substance: PERTUZUMAB
     Indication: HER-2 POSITIVE BREAST CANCER
     Dosage: ADMINISTERED ON THE THIRD DAY OF RADIOTHERAPY WITHOUT DOCETAXEL
     Route: 042
  6. PERTUZUMAB. [Suspect]
     Active Substance: PERTUZUMAB
     Dosage: 6TH CYCLE
     Route: 042
  7. DOCETAXEL. [Concomitant]
     Active Substance: DOCETAXEL
     Indication: HER-2 POSITIVE BREAST CANCER
     Route: 065

REACTIONS (1)
  - Meningeal disorder [Recovered/Resolved]
